FAERS Safety Report 8145027-1 (Version None)
Quarter: 2012Q1

REPORT INFORMATION
  Report Type: 
  Country: None (occurrence: None)
  Receive Date: 20120217
  Receipt Date: 20120207
  Transmission Date: 20120608
  Serious: Yes (Other)
  Sender: FDA-Public Use
  Company Number: PHHY2012AR004400

PATIENT
  Sex: Female

DRUGS (1)
  1. ONBREZ [Suspect]
     Indication: ASTHMA
     Dosage: 1 DF, QD
     Dates: start: 20111001, end: 20111001

REACTIONS (4)
  - ABSCESS [None]
  - THROAT IRRITATION [None]
  - TONSILLITIS [None]
  - PYREXIA [None]
